FAERS Safety Report 6982933-5 (Version None)
Quarter: 2010Q3

REPORT INFORMATION
  Report Type: 
  Country: None (occurrence: None)
  Receive Date: 20100914
  Receipt Date: 20100420
  Transmission Date: 20110219
  Serious: No
  Sender: FDA-Public Use
  Company Number: US-PFIZER INC-2010029485

PATIENT
  Sex: Male
  Weight: 79.365 kg

DRUGS (2)
  1. LYRICA [Suspect]
     Indication: NEURALGIA
     Dosage: 50 MG, 1X/DAY
     Route: 048
     Dates: start: 20100201, end: 20100201
  2. ATIVAN [Concomitant]
     Dosage: UNK

REACTIONS (1)
  - ABNORMAL DREAMS [None]
